FAERS Safety Report 23366763 (Version 1)
Quarter: 2024Q1

REPORT INFORMATION
  Report Type: Spontaneous
  Country: TW (occurrence: TW)
  Receive Date: 20240104
  Receipt Date: 20240104
  Transmission Date: 20240410
  Serious: Yes (Death, Hospitalization, Other)
  Sender: FDA-Public Use
  Company Number: TW-PFIZER INC-PV202300207901

PATIENT
  Age: 48 Year
  Sex: Female

DRUGS (4)
  1. LORLATINIB [Suspect]
     Active Substance: LORLATINIB
     Indication: Lung adenocarcinoma
     Dosage: UNK
     Dates: start: 20191015
  2. LORLATINIB [Suspect]
     Active Substance: LORLATINIB
     Dosage: 4 DF, QD
     Dates: start: 20191125
  3. LORLATINIB [Suspect]
     Active Substance: LORLATINIB
     Dosage: 3 DF, QD
     Dates: start: 20200917
  4. LORLATINIB [Suspect]
     Active Substance: LORLATINIB
     Dosage: 4 DF, QD
     Dates: start: 20201005

REACTIONS (7)
  - Death [Fatal]
  - Paralysis [Unknown]
  - Hypoxia [Unknown]
  - Neoplasm progression [Unknown]
  - Hyperhidrosis [Unknown]
  - Amnesia [Unknown]
  - Depressed mood [Unknown]

NARRATIVE: CASE EVENT DATE: 20200901
